FAERS Safety Report 22125931 (Version 2)
Quarter: 2023Q1

REPORT INFORMATION
  Report Type: Spontaneous
  Country: US (occurrence: US)
  Receive Date: 20230322
  Receipt Date: 20230323
  Transmission Date: 20230418
  Serious: Yes (Other)
  Sender: FDA-Public Use
  Company Number: US-PFIZER INC-PV202300052190

PATIENT
  Age: 66 Year
  Sex: Female

DRUGS (1)
  1. IBRANCE [Suspect]
     Active Substance: PALBOCICLIB
     Indication: Invasive ductal breast carcinoma
     Dosage: 125 MG

REACTIONS (6)
  - Neutropenia [Unknown]
  - COVID-19 pneumonia [Unknown]
  - Iron deficiency anaemia [Unknown]
  - Neoplasm progression [Unknown]
  - Oedema peripheral [Unknown]
  - Peripheral venous disease [Unknown]
